FAERS Safety Report 24747456 (Version 1)
Quarter: 2024Q4

REPORT INFORMATION
  Report Type: Spontaneous
  Country: US (occurrence: None)
  Receive Date: 20241217
  Receipt Date: 20241217
  Transmission Date: 20250114
  Serious: No
  Sender: Public
  Company Number: None

PATIENT
  Age: 55 Year
  Sex: Female

DRUGS (1)
  1. COSENTYX [Suspect]
     Active Substance: SECUKINUMAB
     Indication: Psoriatic arthropathy
     Dosage: 300 MG  EVERY 28 DAYS SUBCUTANEOUS?
     Route: 058
     Dates: start: 20240408

REACTIONS (2)
  - Pneumonia [None]
  - Product dose omission in error [None]

NARRATIVE: CASE EVENT DATE: 20241011
